FAERS Safety Report 7645250-6 (Version None)
Quarter: 2011Q3

REPORT INFORMATION
  Report Type: 
  Country: None (occurrence: None)
  Receive Date: 20110729
  Receipt Date: 20110725
  Transmission Date: 20111222
  Serious: Yes (Hospitalization, Disabling, Other)
  Sender: FDA-Public Use
  Company Number: US-MERCK-1104USA03486

PATIENT
  Age: 60 Year
  Sex: Female

DRUGS (7)
  1. FOSAMAX [Suspect]
     Indication: OSTEOPOROSIS
     Route: 048
     Dates: start: 19960301, end: 20070401
  2. COD LIVER OIL [Concomitant]
     Route: 048
     Dates: start: 19930101
  3. ASCORBIC ACID [Concomitant]
     Route: 048
     Dates: start: 19930101
  4. FOSAMAX [Suspect]
     Route: 065
     Dates: start: 20090413, end: 20110620
  5. FOSAMAX [Suspect]
     Route: 048
     Dates: start: 20101201
  6. ACTONEL [Suspect]
     Route: 065
     Dates: start: 20070501, end: 20070801
  7. VITAMINS (UNSPECIFIED) [Concomitant]
     Route: 048
     Dates: start: 19930101

REACTIONS (41)
  - PAIN [None]
  - DEHYDRATION [None]
  - OEDEMA PERIPHERAL [None]
  - HAEMOGLOBIN DECREASED [None]
  - CALCIUM DEFICIENCY [None]
  - ACUTE RESPIRATORY FAILURE [None]
  - SPINAL FRACTURE [None]
  - VITAMIN D DEFICIENCY [None]
  - HYPOKALAEMIA [None]
  - HAEMATOCRIT DECREASED [None]
  - PALPITATIONS [None]
  - INJURY [None]
  - TIBIA FRACTURE [None]
  - SYSTEMIC INFLAMMATORY RESPONSE SYNDROME [None]
  - FALL [None]
  - WEIGHT INCREASED [None]
  - DACRYOSTENOSIS ACQUIRED [None]
  - CONSTIPATION [None]
  - FEMUR FRACTURE [None]
  - ANAEMIA [None]
  - SEPSIS [None]
  - TACHYCARDIA [None]
  - ANGINA PECTORIS [None]
  - CHRONIC OBSTRUCTIVE PULMONARY DISEASE [None]
  - BRONCHITIS [None]
  - ATRIAL TACHYCARDIA [None]
  - NON-CARDIAC CHEST PAIN [None]
  - ANKLE FRACTURE [None]
  - PNEUMONIA [None]
  - SPINAL COMPRESSION FRACTURE [None]
  - MELANOCYTIC NAEVUS [None]
  - LACERATION [None]
  - FIBULA FRACTURE [None]
  - EMPHYSEMA [None]
  - ABDOMINAL PAIN [None]
  - TOOTH DISORDER [None]
  - RHINITIS ALLERGIC [None]
  - INSOMNIA [None]
  - HYPOVOLAEMIA [None]
  - CONTUSION [None]
  - ASTHMA [None]
